FAERS Safety Report 21035210 (Version 1)
Quarter: 2022Q3

REPORT INFORMATION
  Report Type: Spontaneous
  Country: US (occurrence: US)
  Receive Date: 20220701
  Receipt Date: 20220701
  Transmission Date: 20221027
  Serious: Yes (Hospitalization, Other)
  Sender: FDA-Public Use
  Company Number: US-BRISTOL-MYERS SQUIBB COMPANY-2022-064011

PATIENT
  Age: 79 Year
  Sex: Female
  Weight: 92.986 kg

DRUGS (2)
  1. ELIQUIS [Suspect]
     Active Substance: APIXABAN
     Indication: Cerebrovascular accident prophylaxis
     Route: 065
     Dates: start: 202205, end: 202205
  2. ELIQUIS [Suspect]
     Active Substance: APIXABAN
     Route: 065

REACTIONS (9)
  - Loss of consciousness [Unknown]
  - Post procedural haemorrhage [Unknown]
  - Back disorder [Unknown]
  - Hypotension [Unknown]
  - Anaemia [Unknown]
  - Haematochezia [Unknown]
  - Hypertension [Unknown]
  - Off label use [Unknown]
  - Prescribed underdose [Unknown]

NARRATIVE: CASE EVENT DATE: 20220521
